FAERS Safety Report 19590911 (Version 1)
Quarter: 2021Q3

REPORT INFORMATION
  Report Type: Spontaneous
  Country: US (occurrence: US)
  Receive Date: 20210721
  Receipt Date: 20210721
  Transmission Date: 20211014
  Serious: No
  Sender: FDA-Public Use
  Company Number: US-SA-2021SA235725

PATIENT
  Age: 12 Year
  Sex: Male

DRUGS (1)
  1. LANTUS SOLOSTAR [Suspect]
     Active Substance: INSULIN GLARGINE
     Indication: TYPE 1 DIABETES MELLITUS
     Dosage: DRUG STRUCTURE DOSAGE : 14 UNITS DRUG INTERVAL DOSAGE : ONCE NIGHTLY
     Route: 065

REACTIONS (1)
  - Product storage error [Unknown]
